FAERS Safety Report 7494687-7 (Version None)
Quarter: 2011Q2

REPORT INFORMATION
  Report Type: 
  Country: None (occurrence: None)
  Receive Date: 20110520
  Receipt Date: 20110518
  Transmission Date: 20111010
  Serious: Yes (Life-Threatening)
  Sender: FDA-Public Use
  Company Number: JP-NOVOPROD-328072

PATIENT
  Sex: Male
  Weight: 83.4 kg

DRUGS (7)
  1. OLMESARTAN MEDOXOMIL [Concomitant]
     Dosage: 20 MG, QD
     Route: 048
     Dates: start: 20090717
  2. INSULIN [Suspect]
     Indication: TYPE 2 DIABETES MELLITUS
     Dosage: 6-14 U, QD
     Route: 058
     Dates: start: 20100405, end: 20101004
  3. INSULIN [Suspect]
     Indication: TYPE 2 DIABETES MELLITUS
     Dosage: 8 U, QD
     Route: 058
     Dates: start: 20101005, end: 20101011
  4. AMARYL [Concomitant]
     Dosage: 1.5 MG, QD
     Dates: start: 20110513
  5. BYETTA [Concomitant]
     Indication: TYPE 2 DIABETES MELLITUS
     Dosage: 10 MCG, QD
     Dates: start: 20110218, end: 20110513
  6. AMARYL [Concomitant]
     Dosage: 1.0 MG, QD
     Dates: start: 20110304, end: 20110512
  7. VICTOZA [Suspect]
     Indication: TYPE 2 DIABETES MELLITUS
     Dosage: 0.9 MG, QD
     Dates: start: 20101012, end: 20110217

REACTIONS (1)
  - LUNG NEOPLASM MALIGNANT [None]
